FAERS Safety Report 4737220-2 (Version None)
Quarter: 2005Q3

REPORT INFORMATION
  Report Type: 
  Country: None (occurrence: None)
  Receive Date: 20050808
  Receipt Date: 20050705
  Transmission Date: 20060218
  Serious: Yes (Death, Hospitalization, Other)
  Sender: FDA-Public Use
  Company Number: US-MERCK-0507USA00578

PATIENT
  Age: 76 Year
  Sex: Male
  Weight: 105 kg

DRUGS (6)
  1. VIOXX [Suspect]
     Route: 048
     Dates: start: 20010101
  2. FLOMAX [Concomitant]
     Route: 065
  3. LESCOL [Concomitant]
     Route: 065
  4. SYNTHROID [Concomitant]
     Route: 065
  5. VERAPAMIL MSD LP [Concomitant]
     Route: 065
  6. ZOLOFT [Concomitant]
     Route: 065

REACTIONS (12)
  - ADVERSE EVENT [None]
  - ATRIAL FIBRILLATION [None]
  - CEREBROVASCULAR ACCIDENT [None]
  - CONFUSIONAL STATE [None]
  - DEATH [None]
  - DEMENTIA [None]
  - DEMENTIA ALZHEIMER'S TYPE [None]
  - GASTROINTESTINAL HAEMORRHAGE [None]
  - HYPERLIPIDAEMIA [None]
  - ISCHAEMIC CEREBRAL INFARCTION [None]
  - ORAL SOFT TISSUE DISORDER [None]
  - TRANSIENT ISCHAEMIC ATTACK [None]
